FAERS Safety Report 5008649-2 (Version None)
Quarter: 2006Q2

REPORT INFORMATION
  Report Type: 
  Country: None (occurrence: None)
  Receive Date: 20060523
  Receipt Date: 20060517
  Transmission Date: 20061013
  Serious: Yes (Other)
  Sender: FDA-Public Use
  Company Number: US-GLAXOSMITHKLINE-A0606034A

PATIENT
  Age: 45 Year
  Sex: Male

DRUGS (4)
  1. LAMICTAL [Suspect]
     Indication: DRUG USE FOR UNKNOWN INDICATION
     Dosage: 200MG AT NIGHT
     Route: 048
     Dates: start: 20060301, end: 20060516
  2. WELLBUTRIN [Suspect]
     Indication: DRUG USE FOR UNKNOWN INDICATION
     Dosage: 300MG IN THE MORNING
     Route: 048
     Dates: start: 20060101, end: 20060516
  3. STRATTERA [Concomitant]
  4. DIOVAN [Concomitant]

REACTIONS (19)
  - ASTHENIA [None]
  - BLOOD GLUCOSE INCREASED [None]
  - BODY TEMPERATURE INCREASED [None]
  - CONVULSION [None]
  - FEELING HOT [None]
  - HYPERHIDROSIS [None]
  - HYPERVENTILATION [None]
  - KETOACIDOSIS [None]
  - MUSCLE SPASMS [None]
  - MUSCULOSKELETAL STIFFNESS [None]
  - PRURITUS [None]
  - RASH [None]
  - RESPIRATORY ARREST [None]
  - SENSATION OF PRESSURE [None]
  - SENSORY DISTURBANCE [None]
  - SHOCK [None]
  - TACHYCARDIA [None]
  - TINNITUS [None]
  - TREMOR [None]
